FAERS Safety Report 17186216 (Version 5)
Quarter: 2021Q2

REPORT INFORMATION
  Report Type: Spontaneous
  Country: US (occurrence: US)
  Receive Date: 20191220
  Receipt Date: 20210526
  Transmission Date: 20210716
  Serious: No
  Sender: FDA-Public Use
  Company Number: US-VERTEX PHARMACEUTICALS-2019-013284

PATIENT
  Age: 48 Year
  Sex: Female
  Weight: 62 kg

DRUGS (20)
  1. COLCHICINE. [Concomitant]
     Active Substance: COLCHICINE
  2. CITALOPRAM [Concomitant]
     Active Substance: CITALOPRAM HYDROBROMIDE
     Dosage: UNK
  3. AMITIZA [Concomitant]
     Active Substance: LUBIPROSTONE
     Dosage: UNK
  4. TYLENOL [Concomitant]
     Active Substance: ACETAMINOPHEN
  5. PREDNISONE. [Concomitant]
     Active Substance: PREDNISONE
  6. PANCREASE [PANCREATIN] [Concomitant]
     Dosage: UNK
  7. LORAZEPAM. [Concomitant]
     Active Substance: LORAZEPAM
     Dosage: UNK
  8. IBUPROFEN. [Concomitant]
     Active Substance: IBUPROFEN
  9. TRIKAFTA [Suspect]
     Active Substance: ELEXACAFTOR\IVACAFTOR\TEZACAFTOR
     Dosage: ONE ORANGE PILL EVERY MORNING AND ONE BLUE PILL IN THE EVENING
     Route: 048
     Dates: start: 2020, end: 20210513
  10. VITAMIN D [COLECALCIFEROL] [Concomitant]
     Active Substance: CHOLECALCIFEROL
     Dosage: UNK
  11. SPIRONOLACTONE. [Concomitant]
     Active Substance: SPIRONOLACTONE
     Dosage: 100 MG
  12. DOXYCYCLINE. [Concomitant]
     Active Substance: DOXYCYCLINE
  13. HUMALOG [Concomitant]
     Active Substance: INSULIN LISPRO
  14. MORPHINE SULFATE. [Concomitant]
     Active Substance: MORPHINE SULFATE
     Dosage: UNK
  15. SPIRIVA [Concomitant]
     Active Substance: TIOTROPIUM BROMIDE MONOHYDRATE
     Dosage: UNK
  16. TRIKAFTA [Suspect]
     Active Substance: ELEXACAFTOR\IVACAFTOR\TEZACAFTOR
     Indication: CYSTIC FIBROSIS
     Dosage: 2 TABLETS OF 100MG ELEXACAFTOR/ 50 MG TEZACAFTOR/ 75 MG IVACAFTOR AM; 1 TABLET 150 MG IVACAFTOR PM
     Route: 048
     Dates: start: 20191204
  17. ALBUTEROL [SALBUTAMOL] [Concomitant]
     Active Substance: ALBUTEROL
     Dosage: UNK
     Route: 055
  18. FENTANYL. [Concomitant]
     Active Substance: FENTANYL
     Dosage: UNK
  19. URSODIOL. [Concomitant]
     Active Substance: URSODIOL
     Dosage: UNK
  20. LANTUS [Concomitant]
     Active Substance: INSULIN GLARGINE
     Dosage: UNK

REACTIONS (25)
  - Anxiety [Unknown]
  - Depression [Unknown]
  - Anorectal discomfort [Unknown]
  - Breast pain [Unknown]
  - Somnolence [Unknown]
  - Pruritus [Unknown]
  - Pelvic pain [Unknown]
  - Fatigue [Unknown]
  - Oedema [Unknown]
  - Syncope [Unknown]
  - Feeling abnormal [Unknown]
  - Blood triglycerides increased [Unknown]
  - Increased appetite [Not Recovered/Not Resolved]
  - Pain [Unknown]
  - Gastritis [Unknown]
  - Headache [Unknown]
  - Balance disorder [Unknown]
  - Postmenopausal haemorrhage [Unknown]
  - Constipation [Unknown]
  - Xanthelasma [Not Recovered/Not Resolved]
  - Weight increased [Not Recovered/Not Resolved]
  - Mucous stools [Unknown]
  - Abdominal distension [Unknown]
  - Abdominal pain [Unknown]
  - Stress [Not Recovered/Not Resolved]

NARRATIVE: CASE EVENT DATE: 20191209
